FAERS Safety Report 6063069-7 (Version None)
Quarter: 2009Q1

REPORT INFORMATION
  Report Type: 
  Country: None (occurrence: None)
  Receive Date: 20090203
  Receipt Date: 20090128
  Transmission Date: 20090719
  Serious: Yes (Hospitalization, Other)
  Sender: FDA-Public Use
  Company Number: PHHY2009JP03278

PATIENT
  Age: 64 Year
  Sex: Male
  Weight: 62 kg

DRUGS (5)
  1. CYCLOSPORINE [Suspect]
     Indication: AUTOIMMUNE HEPATITIS
     Dosage: 100 MG/DAY
     Route: 048
  2. PREDNISOLONE [Concomitant]
     Indication: AUTOIMMUNE HEPATITIS
     Dosage: 60 MG
  3. AZATHIOPRINE [Concomitant]
     Dosage: 50 MG
  4. ACICLOVIR [Concomitant]
     Indication: HERPES ZOSTER
     Dosage: 750 MG
     Route: 042
  5. VIDARABINE [Concomitant]
     Indication: HERPES ZOSTER

REACTIONS (3)
  - CHOLANGITIS [None]
  - HERPES ZOSTER [None]
  - POST HERPETIC NEURALGIA [None]
